FAERS Safety Report 24081176 (Version 1)
Quarter: 2024Q3

REPORT INFORMATION
  Report Type: Spontaneous
  Country: US (occurrence: US)
  Receive Date: 20240711
  Receipt Date: 20240711
  Transmission Date: 20241016
  Serious: No
  Sender: KRAMER LABORATORIES
  Company Number: US-KRAMERLABS-2023-US-041737

PATIENT
  Age: 76 Year
  Sex: Female
  Weight: 56.7 kg

DRUGS (3)
  1. NIZORAL A-D [Suspect]
     Active Substance: KETOCONAZOLE
     Indication: Dandruff
     Dosage: 1 APPLICATION
     Route: 061
     Dates: start: 20231201
  2. AMLODIPINE [Concomitant]
     Active Substance: AMLODIPINE BESYLATE
  3. LOSARTAN [Concomitant]
     Active Substance: LOSARTAN

REACTIONS (1)
  - Application site pruritus [Not Recovered/Not Resolved]
